FAERS Safety Report 9491817 (Version 1)
Quarter: 2013Q3

REPORT INFORMATION
  Report Type: Not Available
  Country: US (occurrence: US)
  Receive Date: 20130919
  Receipt Date: 20130919
  Transmission Date: 20140515
  Serious: Yes (Other)
  Sender: FDA-Public Use
  Company Number: US-LUNDBECK-DKLU1083455

PATIENT
  Age: 20 Year
  Sex: Female

DRUGS (3)
  1. SABRIL (TABLET) [Suspect]
     Indication: EPILEPSY
     Dates: start: 20110911
  2. SABRIL (TABLET) [Suspect]
     Indication: COMPLEX PARTIAL SEIZURES
  3. SABRIL (TABLET) [Suspect]
     Indication: EPILEPSY

REACTIONS (2)
  - Convulsion [Unknown]
  - Medication error [Unknown]
